FAERS Safety Report 5202007-3 (Version None)
Quarter: 2006Q4

REPORT INFORMATION
  Report Type: 
  Country: None (occurrence: None)
  Receive Date: 20061228
  Receipt Date: 20061227
  Transmission Date: 20070319
  Serious: Yes (Life-Threatening, Other)
  Sender: FDA-Public Use
  Company Number: 2006S1000239

PATIENT
  Age: 16 Day
  Sex: Male

DRUGS (10)
  1. NITRIC OXIDE [Suspect]
     Indication: LUNG DISORDER
     Dosage: 5 PPM; INH_GAS; INH, CONT, INH
     Route: 055
     Dates: start: 20061114, end: 20061130
  2. NITRIC OXIDE [Suspect]
     Indication: PROPHYLAXIS
     Dosage: 5 PPM; INH_GAS; INH, CONT, INH
     Route: 055
     Dates: start: 20061114, end: 20061130
  3. MEROPENEM [Concomitant]
  4. TOBRAMYCIN [Concomitant]
  5. EPINEPHRINE [Concomitant]
  6. FENTANYL TRANSDERMAL SYSTEM [Concomitant]
  7. INSULIN [Concomitant]
  8. DIPYRIDAMOLE [Concomitant]
  9. EFILINA (AMINOPHYLLINE) [Concomitant]
  10. SODIUM BICARBONATE [Concomitant]

REACTIONS (11)
  - BACTERIAL INFECTION [None]
  - GLUCOSE TOLERANCE IMPAIRED [None]
  - HYPOTENSION [None]
  - INCREASED BRONCHIAL SECRETION [None]
  - LEUKOPENIA [None]
  - PALLOR [None]
  - PSEUDOMONAS INFECTION [None]
  - PYREXIA [None]
  - RESPIRATORY DISORDER [None]
  - SEPTIC SHOCK [None]
  - THROMBOCYTOPENIA [None]
